FAERS Safety Report 17251396 (Version 1)
Quarter: 2019Q4

REPORT INFORMATION
  Report Type: Spontaneous
  Country: US (occurrence: US)
  Receive Date: 20191213
  Receipt Date: 20191213
  Transmission Date: 20200122
  Serious: Yes (Hospitalization)
  Sender: FDA-Public Use
  Company Number: None

PATIENT
  Age: 16 Year
  Sex: Male
  Weight: 114 kg

DRUGS (6)
  1. ONCASPAR [Suspect]
     Active Substance: PEGASPARGASE
     Dates: end: 20191118
  2. DAUNORUBICIN [Suspect]
     Active Substance: DAUNORUBICIN
     Dates: end: 20191129
  3. PREDNISOLONE. [Suspect]
     Active Substance: PREDNISOLONE
     Dates: end: 20191130
  4. METHOTREXATE. [Suspect]
     Active Substance: METHOTREXATE
     Dates: end: 20191122
  5. CYTARABINE. [Suspect]
     Active Substance: CYTARABINE
     Dates: end: 20191115
  6. VINCRISTINE SULFATE. [Suspect]
     Active Substance: VINCRISTINE SULFATE
     Dates: end: 20191129

REACTIONS (9)
  - Lactic acidosis [None]
  - Acinetobacter test positive [None]
  - Hepatotoxicity [None]
  - Hypofibrinogenaemia [None]
  - Respiratory alkalosis [None]
  - Nausea [None]
  - Blood bilirubin increased [None]
  - Haemorrhage intracranial [None]
  - Liver function test increased [None]

NARRATIVE: CASE EVENT DATE: 20191201
